FAERS Safety Report 19515388 (Version 1)
Quarter: 2021Q3

REPORT INFORMATION
  Report Type: Spontaneous
  Country: CN (occurrence: CN)
  Receive Date: 20210710
  Receipt Date: 20210710
  Transmission Date: 20211014
  Serious: Yes (Hospitalization, Other)
  Sender: FDA-Public Use
  Company Number: NVSC2021CN150043

PATIENT
  Age: 48 Year
  Sex: Female
  Weight: 55 kg

DRUGS (3)
  1. SANDIMMUN [Suspect]
     Active Substance: CYCLOSPORINE
     Indication: NEOPLASM
     Dosage: 250 MG, QD
     Route: 042
     Dates: start: 20210618, end: 20210618
  2. SODIUM CHLORIDE. [Concomitant]
     Active Substance: SODIUM CHLORIDE
     Indication: PRODUCT USED FOR UNKNOWN INDICATION
     Dosage: 500 ML, QD
     Route: 041
     Dates: start: 20210618, end: 20210618
  3. SANDIMMUN [Suspect]
     Active Substance: CYCLOSPORINE
     Indication: IMMUNOSUPPRESSION

REACTIONS (1)
  - Myelosuppression [Recovering/Resolving]

NARRATIVE: CASE EVENT DATE: 20210618
